FAERS Safety Report 8131922-6 (Version None)
Quarter: 2012Q1

REPORT INFORMATION
  Report Type: 
  Country: None (occurrence: None)
  Receive Date: 20120213
  Receipt Date: 20120209
  Transmission Date: 20120608
  Serious: Yes (Hospitalization, Other)
  Sender: FDA-Public Use
  Company Number: US-PFIZER INC-2011288565

PATIENT
  Sex: Female
  Weight: 63 kg

DRUGS (13)
  1. ZOLOFT [Suspect]
     Indication: NERVOUSNESS
     Dosage: 50 MG, 1X/DAY
     Route: 048
     Dates: start: 20111201, end: 20120101
  2. GLIPIZIDE [Concomitant]
     Indication: DIABETES MELLITUS
     Dosage: UNK
  3. PERCOCET [Concomitant]
     Indication: PAIN
     Dosage: UNK
  4. PRAVASTATIN [Concomitant]
     Indication: BLOOD CHOLESTEROL INCREASED
     Dosage: UNK
  5. KLONOPIN [Concomitant]
     Indication: ANXIETY
     Dosage: 2 MG ONE TABLET IN MORNING AND TWO TABLETS AT NIGHT
  6. OXYCODONE [Concomitant]
     Indication: PAIN
     Dosage: HALF A TABLET EVERY FOUR TO SIX HOURS
  7. REMERON [Concomitant]
     Indication: DEPRESSION
     Dosage: 30 MG, DAILY
  8. HYDROCODONE [Concomitant]
     Indication: PAIN
     Dosage: UNK
  9. CHANTIX [Suspect]
     Dosage: 1 MG, 2X/DAY
     Route: 048
     Dates: start: 20111101, end: 20111205
  10. CHANTIX [Suspect]
     Dosage: 0.5 MG, 2X/DAY
     Route: 048
     Dates: start: 20111101, end: 20111101
  11. CHANTIX [Suspect]
     Indication: SMOKING CESSATION THERAPY
     Dosage: 0.5 MG, 1X/DAY
     Route: 048
     Dates: start: 20111121, end: 20111101
  12. RESTORIL [Suspect]
     Indication: INSOMNIA
     Dosage: 30 MG, AS NEEDED
     Dates: start: 20111101
  13. ATENOLOL [Concomitant]
     Indication: HYPERTENSION
     Dosage: UNK

REACTIONS (16)
  - DELUSION [None]
  - SOMNOLENCE [None]
  - NAUSEA [None]
  - DYSGEUSIA [None]
  - ANXIETY [None]
  - DEPRESSION [None]
  - DIZZINESS [None]
  - RESTLESSNESS [None]
  - FALL [None]
  - FEELING ABNORMAL [None]
  - MALAISE [None]
  - INSOMNIA [None]
  - NERVOUSNESS [None]
  - DRUG INEFFECTIVE [None]
  - TOBACCO USER [None]
  - PAIN [None]
